FAERS Safety Report 15550885 (Version 2)
Quarter: 2019Q1

REPORT INFORMATION
  Report Type: Spontaneous
  Country: JP (occurrence: JP)
  Receive Date: 20181025
  Receipt Date: 20190103
  Transmission Date: 20190417
  Serious: Yes (Hospitalization, Other)
  Sender: FDA-Public Use
  Company Number: JP-JNJFOC-20181034161

PATIENT
  Age: 71 Year
  Sex: Male
  Weight: 51.6 kg

DRUGS (11)
  1. XARELTO [Suspect]
     Active Substance: RIVAROXABAN
     Indication: VENOUS THROMBOSIS
     Route: 048
     Dates: start: 20180730, end: 20180913
  2. REBAMIPIDE [Suspect]
     Active Substance: REBAMIPIDE
     Indication: GASTROINTESTINAL DISORDER
     Route: 048
     Dates: start: 20180928
  3. LIXIANA [Concomitant]
     Active Substance: EDOXABAN TOSYLATE
     Route: 048
     Dates: start: 20180925
  4. XARELTO [Suspect]
     Active Substance: RIVAROXABAN
     Indication: SINUS ARRHYTHMIA
     Route: 048
     Dates: start: 20180730, end: 20180913
  5. REBAMIPIDE [Suspect]
     Active Substance: REBAMIPIDE
     Indication: GASTROINTESTINAL DISORDER
     Route: 048
     Dates: start: 20180730, end: 20180924
  6. XARELTO [Suspect]
     Active Substance: RIVAROXABAN
     Indication: VENOUS THROMBOSIS
     Route: 048
     Dates: start: 20180914, end: 20180924
  7. BROTIZOLAM M [Suspect]
     Active Substance: BROTIZOLAM
     Indication: INSOMNIA
     Route: 048
     Dates: start: 20180730, end: 20180924
  8. REBAMIPIDE [Suspect]
     Active Substance: REBAMIPIDE
     Indication: GASTROINTESTINAL DISORDER
     Route: 048
     Dates: start: 20180925
  9. BROTIZOLAM M [Suspect]
     Active Substance: BROTIZOLAM
     Indication: INSOMNIA
     Route: 048
     Dates: start: 20180925, end: 20180928
  10. XARELTO [Suspect]
     Active Substance: RIVAROXABAN
     Indication: SINUS ARRHYTHMIA
     Route: 048
     Dates: start: 20180914, end: 20180924
  11. AMITIZA [Suspect]
     Active Substance: LUBIPROSTONE
     Indication: CONSTIPATION
     Route: 048
     Dates: end: 20180920

REACTIONS (4)
  - Traumatic fracture [Unknown]
  - Eosinophil count increased [Unknown]
  - Road traffic accident [Unknown]
  - Toxic skin eruption [Recovered/Resolved]

NARRATIVE: CASE EVENT DATE: 20180918
